FAERS Safety Report 18493564 (Version 36)
Quarter: 2025Q4

REPORT INFORMATION
  Report Type: Report from Study
  Country: CO (occurrence: CO)
  Receive Date: 20201111
  Receipt Date: 20251204
  Transmission Date: 20260117
  Serious: Yes (Life-Threatening, Hospitalization, Other)
  Sender: TAKEDA
  Company Number: CO-TAKEDA-CO202001769

PATIENT
  Age: 44 Year
  Sex: Male
  Weight: 75 kg

DRUGS (11)
  1. ICATIBANT [Suspect]
     Active Substance: ICATIBANT ACETATE
     Indication: Product used for unknown indication
     Dosage: 1 DOSAGE FORM
  2. ICATIBANT [Suspect]
     Active Substance: ICATIBANT ACETATE
     Dosage: UNK
  3. ICATIBANT [Suspect]
     Active Substance: ICATIBANT ACETATE
     Dosage: 30 MILLIGRAM
  4. LANADELUMAB [Suspect]
     Active Substance: LANADELUMAB
     Indication: Hereditary angioedema
     Dosage: 300 MILLIGRAM, Q2WEEKS
     Dates: start: 20210802
  5. LANADELUMAB [Suspect]
     Active Substance: LANADELUMAB
     Dosage: 1 DOSAGE FORM, Q2WEEKS
  6. LANADELUMAB [Suspect]
     Active Substance: LANADELUMAB
     Dosage: 300 MILLIGRAM, Q2WEEKS
  7. CINRYZE [Suspect]
     Active Substance: HUMAN C1-ESTERASE INHIBITOR
     Indication: Hereditary angioedema
     Dosage: 1000 INTERNATIONAL UNIT, 2/WEEK
     Dates: start: 201606
  8. CINRYZE [Suspect]
     Active Substance: HUMAN C1-ESTERASE INHIBITOR
  9. CINRYZE [Suspect]
     Active Substance: HUMAN C1-ESTERASE INHIBITOR
  10. DANAZOL [Concomitant]
     Active Substance: DANAZOL
     Dosage: UNK
  11. TRANEXAMIC ACID [Concomitant]
     Active Substance: TRANEXAMIC ACID
     Dosage: UNK

REACTIONS (33)
  - Hereditary angioedema [Recovered/Resolved]
  - Hernia [Unknown]
  - Back pain [Recovering/Resolving]
  - Hand fracture [Unknown]
  - Road traffic accident [Unknown]
  - Fall [Recovering/Resolving]
  - Mobility decreased [Recovering/Resolving]
  - Spinal cord disorder [Unknown]
  - Respiratory symptom [Recovering/Resolving]
  - Oropharyngeal pain [Recovering/Resolving]
  - Obstruction [Recovering/Resolving]
  - Pain [Recovering/Resolving]
  - Procedural pain [Unknown]
  - Depressive symptom [Unknown]
  - Anhedonia [Unknown]
  - Decreased appetite [Unknown]
  - Anxiety [Unknown]
  - Insomnia [Unknown]
  - Anger [Unknown]
  - Irritability [Unknown]
  - Emotional disorder [Unknown]
  - Thinking abnormal [Unknown]
  - Stress [Unknown]
  - Product distribution issue [Unknown]
  - Product availability issue [Unknown]
  - Product use issue [Unknown]
  - Treatment noncompliance [Unknown]
  - Weight increased [Unknown]
  - Body height decreased [Unknown]
  - Product dose omission issue [Unknown]
  - Inappropriate schedule of product administration [Unknown]
  - Insurance issue [Unknown]
  - Headache [Recovered/Resolved]

NARRATIVE: CASE EVENT DATE: 20200701
